FAERS Safety Report 23085223 (Version 1)
Quarter: 2023Q4

REPORT INFORMATION
  Report Type: Spontaneous
  Country: US (occurrence: None)
  Receive Date: 20231017
  Receipt Date: 20231017
  Transmission Date: 20240109
  Serious: Yes (Other)
  Sender: FDA-Public Use
  Company Number: None

PATIENT
  Age: 22 Year
  Sex: Female
  Weight: 80.74 kg

DRUGS (4)
  1. NEXPLANON [Suspect]
     Active Substance: ETONOGESTREL
  2. VITAMINS [Concomitant]
     Active Substance: VITAMINS
  3. Women^s pro-biotics [Concomitant]
  4. CETIRIZINE [Concomitant]
     Active Substance: CETIRIZINE HYDROCHLORIDE

REACTIONS (8)
  - Complication associated with device [None]
  - Menstruation irregular [None]
  - Heavy menstrual bleeding [None]
  - Mood swings [None]
  - Depression [None]
  - Fatigue [None]
  - Migraine [None]
  - Weight increased [None]

NARRATIVE: CASE EVENT DATE: 20230501
